FAERS Safety Report 5276158-1 (Version None)
Quarter: 2007Q1

REPORT INFORMATION
  Report Type: 
  Country: None (occurrence: None)
  Receive Date: 20070326
  Receipt Date: 20070326
  Transmission Date: 20070707
  Serious: Yes (Hospitalization)
  Sender: FDA-Public Use
  Company Number: HQWYE748516NOV06

PATIENT
  Age: 46 Year
  Sex: Female

DRUGS (3)
  1. CORDARONE [Suspect]
     Indication: ATRIAL FIBRILLATION
     Dosage: UNSPECIFIED
     Route: 048
     Dates: start: 20020101, end: 20060916
  2. CORDARONE [Suspect]
     Dosage: UNSPECIFIED
     Route: 048
     Dates: start: 20061107, end: 20061101
  3. TRAMADOL HCL [Concomitant]

REACTIONS (4)
  - ALVEOLITIS [None]
  - CHOLESTASIS [None]
  - EOSINOPHILIA [None]
  - PULMONARY EOSINOPHILIA [None]
